FAERS Safety Report 8687035 (Version 2)
Quarter: 2012Q4

REPORT INFORMATION
  Report Type: 
  Country: NO (occurrence: NO)
  Receive Date: 20120727
  Receipt Date: 20120828
  Transmission Date: 20130627
  Serious: Yes (Other)
  Sender: FDA-Public Use
  Company Number: NO-JNJFOC-20120710334

PATIENT
  Age: 24 Year
  Sex: Male

DRUGS (8)
  1. DOXORUBICIN [Suspect]
     Indication: HODGKIN^S DISEASE
     Dosage: 25 (standard) or 35 (escalated) mg/m2 on day 1 every 22 days
     Route: 042
  2. ETOPOSIDE [Suspect]
     Indication: HODGKIN^S DISEASE
     Dosage: 100 (standard) or 200 (escalated) mg/m2 on day 1 and 3 of every 22 days cycle
     Route: 042
  3. PREDNISOLONE [Suspect]
     Indication: HODGKIN^S DISEASE
     Dosage: on day 1-14 every 22 days cycle
     Route: 048
  4. VINCRISTINE [Suspect]
     Indication: HODGKIN^S DISEASE
     Dosage: on day 8 every 22 day cycle
     Route: 042
  5. BLEOMYCIN [Suspect]
     Indication: HODGKIN^S DISEASE
     Dosage: on day 8 every 22 days
     Route: 042
  6. PROCARBAZINE [Suspect]
     Indication: HODGKIN^S DISEASE
     Dosage: on day 1-7 every 22 days
     Route: 048
  7. CYCLOPHOSPHAMIDE [Suspect]
     Indication: HODGKIN^S DISEASE
     Dosage: 650 (standard) or 1250 (escalated) mg/m2 on day 1 every 22 days.
     Route: 042
  8. SULFAMETHOXAZOLE/TRIMETHOPRIM [Concomitant]
     Indication: ANTIFUNGAL PROPHYLAXIS
     Route: 065

REACTIONS (1)
  - Osteonecrosis [Unknown]
